FAERS Safety Report 7593955-8 (Version None)
Quarter: 2011Q3

REPORT INFORMATION
  Report Type: 
  Country: None (occurrence: None)
  Receive Date: 20110706
  Receipt Date: 20110704
  Transmission Date: 20111222
  Serious: Yes (Hospitalization, Other)
  Sender: FDA-Public Use
  Company Number: JP-PFIZER INC-2011130376

PATIENT
  Age: 85 Year
  Sex: Female

DRUGS (4)
  1. LYRICA [Suspect]
     Indication: POST HERPETIC NEURALGIA
     Dosage: 50 MG/DAY
     Route: 048
     Dates: start: 20110607, end: 20110609
  2. CADUET [Concomitant]
     Dosage: UNK
     Route: 048
  3. LYRICA [Suspect]
     Dosage: 150MG/DAY
     Route: 048
     Dates: start: 20110610, end: 20110601
  4. DEPAS [Concomitant]
     Dosage: UNK

REACTIONS (2)
  - PULMONARY EMBOLISM [None]
  - DRUG INEFFECTIVE [None]
